FAERS Safety Report 23634945 (Version 1)
Quarter: 2024Q1

REPORT INFORMATION
  Report Type: Spontaneous
  Country: US (occurrence: US)
  Receive Date: 20240315
  Receipt Date: 20240315
  Transmission Date: 20240410
  Serious: No
  Sender: FDA-Public Use
  Company Number: US-TEVA-VS-3149354

PATIENT
  Age: 9 Month
  Sex: Male

DRUGS (1)
  1. ACETAZOLAMIDE [Suspect]
     Active Substance: ACETAZOLAMIDE
     Indication: Gaze palsy
     Dosage: TITRATED BASED ON GROWTH AND EFFECTIVENESS TO 15 MG/KG/D.
     Route: 048

REACTIONS (1)
  - Off label use [Unknown]
